FAERS Safety Report 13546711 (Version 1)
Quarter: 2017Q2

REPORT INFORMATION
  Report Type: Spontaneous
  Country: US (occurrence: US)
  Receive Date: 20170515
  Receipt Date: 20170515
  Transmission Date: 20170830
  Serious: No
  Sender: FDA-Public Use
  Company Number: US-VIFOR (INTERNATIONAL) INC.-VIT-2017-02175

PATIENT
  Sex: Female

DRUGS (25)
  1. RENVELA [Concomitant]
     Active Substance: SEVELAMER CARBONATE
  2. NOVOLOG [Concomitant]
     Active Substance: INSULIN ASPART
  3. LIPITOR [Concomitant]
     Active Substance: ATORVASTATIN CALCIUM
  4. LANTUS [Concomitant]
     Active Substance: INSULIN GLARGINE
  5. COMBIVENT RESPIMAT [Concomitant]
     Active Substance: ALBUTEROL SULFATE\IPRATROPIUM BROMIDE
  6. SPIRIVA [Concomitant]
     Active Substance: TIOTROPIUM BROMIDE MONOHYDRATE
  7. PROMETHAZINE HYDROCHLORIDE. [Concomitant]
     Active Substance: PROMETHAZINE HYDROCHLORIDE
  8. AMLODIPINE [Concomitant]
     Active Substance: AMLODIPINE BESYLATE
  9. VELTASSA [Suspect]
     Active Substance: PATIROMER
     Indication: HYPERKALAEMIA
     Route: 048
     Dates: start: 20160803
  10. PRAMIPEXOLE. [Concomitant]
     Active Substance: PRAMIPEXOLE
  11. OXYCODONE HYDROCHLORIDE. [Concomitant]
     Active Substance: OXYCODONE HYDROCHLORIDE
  12. CITALOPRAM HYDROBROMIDE. [Concomitant]
     Active Substance: CITALOPRAM HYDROBROMIDE
  13. LASIX [Concomitant]
     Active Substance: FUROSEMIDE
  14. DIALYVITE [Concomitant]
     Active Substance: ASCORBIC ACID\BIOTIN\CALCIUM PANTOTHENATE\COBALAMIN\FOLIC ACID\NIACINAMIDE\PYRIDOXINE HYDROCHLORIDE\RIBOFLAVIN\THIAMINE MONONITRATE
  15. MELATONIN [Concomitant]
     Active Substance: MELATONIN
  16. LEVOTHYROXINE SODIUM. [Concomitant]
     Active Substance: LEVOTHYROXINE SODIUM
  17. MIRAPEX [Concomitant]
     Active Substance: PRAMIPEXOLE DIHYDROCHLORIDE
  18. VITAMIN D2 [Concomitant]
     Active Substance: ERGOCALCIFEROL
  19. REGLAN [Concomitant]
     Active Substance: METOCLOPRAMIDE HYDROCHLORIDE
  20. MIDODRINE HYDROCHLORIDE. [Concomitant]
     Active Substance: MIDODRINE HYDROCHLORIDE
  21. BUPIVACAINE HYDROCHLORIDE. [Concomitant]
     Active Substance: BUPIVACAINE HYDROCHLORIDE
  22. VELTASSA [Suspect]
     Active Substance: PATIROMER
  23. PLAVIX [Concomitant]
     Active Substance: CLOPIDOGREL BISULFATE
  24. MIRALAX [Concomitant]
     Active Substance: POLYETHYLENE GLYCOL 3350
  25. FORADIL [Concomitant]
     Active Substance: FORMOTEROL FUMARATE

REACTIONS (2)
  - Flatulence [Unknown]
  - Inappropriate schedule of drug administration [Unknown]

NARRATIVE: CASE EVENT DATE: 2017
